FAERS Safety Report 25607551 (Version 1)
Quarter: 2025Q3

REPORT INFORMATION
  Report Type: Spontaneous
  Country: GB (occurrence: GB)
  Receive Date: 20250725
  Receipt Date: 20250725
  Transmission Date: 20251021
  Serious: Yes (Life-Threatening, Other)
  Sender: ABBVIE
  Company Number: None

PATIENT
  Age: 34 Year
  Sex: Female

DRUGS (2)
  1. BOTOX [Suspect]
     Active Substance: ONABOTULINUMTOXINA
     Indication: Product used for unknown indication
     Route: 065
     Dates: start: 20250707, end: 20250707
  2. ASPIRIN [Concomitant]
     Active Substance: ASPIRIN
     Indication: Headache

REACTIONS (9)
  - Botulism [Not Recovered/Not Resolved]
  - Eyelid ptosis [Not Recovered/Not Resolved]
  - Muscular weakness [Not Recovered/Not Resolved]
  - Dyspnoea [Not Recovered/Not Resolved]
  - Lethargy [Unknown]
  - Nystagmus [Unknown]
  - Myalgia [Unknown]
  - Muscle spasms [Unknown]
  - Product preparation error [Unknown]

NARRATIVE: CASE EVENT DATE: 20250701
